FAERS Safety Report 6384919-0 (Version None)
Quarter: 2009Q4

REPORT INFORMATION
  Report Type: 
  Country: None (occurrence: None)
  Receive Date: 20091002
  Receipt Date: 20090720
  Transmission Date: 20100525
  Serious: No
  Sender: FDA-Public Use
  Company Number: A0778960A

PATIENT
  Age: 64 Year
  Sex: Male
  Weight: 68.2 kg

DRUGS (11)
  1. REQUIP XL [Suspect]
     Indication: PARKINSON'S DISEASE
     Dosage: 2MG PER DAY
     Route: 048
     Dates: start: 20081101
  2. STALEVO 100 [Concomitant]
     Dosage: 125MG FOUR TIMES PER DAY
  3. SINEMET [Concomitant]
     Indication: PARKINSON'S DISEASE
     Dates: end: 20090201
  4. SELEGILINE HCL [Concomitant]
     Indication: PARKINSON'S DISEASE
     Dosage: 5MG TWICE PER DAY
     Dates: start: 20090401
  5. CLONAZEPAM [Concomitant]
     Indication: PARKINSON'S DISEASE
     Dates: start: 19980101
  6. INDERAL [Concomitant]
     Indication: PARKINSON'S DISEASE
     Dates: start: 19990101
  7. NORTRIPTYLINE HCL [Concomitant]
     Indication: PARKINSON'S DISEASE
     Dates: start: 19980101
  8. FISH OIL [Concomitant]
     Dates: start: 19990101
  9. COENZYME Q10 [Concomitant]
     Dates: start: 19980101
  10. NIACIN [Concomitant]
  11. REFRESH [Concomitant]
     Dates: start: 20080101

REACTIONS (4)
  - DRUG INEFFECTIVE [None]
  - DYSKINESIA [None]
  - FREEZING PHENOMENON [None]
  - RESTLESSNESS [None]
